FAERS Safety Report 23996818 (Version 4)
Quarter: 2025Q4

REPORT INFORMATION
  Report Type: Report from Study
  Country: EU (occurrence: EU)
  Receive Date: 20240620
  Receipt Date: 20251221
  Transmission Date: 20260117
  Serious: Yes (Death, Hospitalization)
  Sender: BIOGEN
  Company Number: EU-BIOGEN-2024BI01269850

PATIENT
  Age: 64 Year
  Sex: Female
  Weight: 82 kg

DRUGS (18)
  1. TOFERSEN [Suspect]
     Active Substance: TOFERSEN
     Indication: Amyotrophic lateral sclerosis
     Route: 037
     Dates: start: 20240607, end: 20251023
  2. TOFERSEN [Suspect]
     Active Substance: TOFERSEN
     Route: 037
     Dates: start: 20240606, end: 20240610
  3. TOFERSEN [Suspect]
     Active Substance: TOFERSEN
     Route: 037
     Dates: start: 20240801, end: 20251023
  4. TOFERSEN [Suspect]
     Active Substance: TOFERSEN
     Dates: start: 20240606, end: 20250116
  5. HYDROXYZINE [Concomitant]
     Active Substance: HYDROXYZINE HYDROCHLORIDE
     Indication: Product used for unknown indication
     Dosage: EVENING
  6. ELIQUIS [Concomitant]
     Active Substance: APIXABAN
     Indication: Product used for unknown indication
     Dosage: MORNING AND EVENING
  7. FUROSEMIDE [Concomitant]
     Active Substance: FUROSEMIDE
     Indication: Product used for unknown indication
  8. MORPHINE [Concomitant]
     Active Substance: MORPHINE
     Indication: Product used for unknown indication
  9. MIDAZOLAM [Concomitant]
     Active Substance: MIDAZOLAM
     Indication: Product used for unknown indication
  10. PIPERACILLIN SODIUM\TAZOBACTAM SODIUM [Concomitant]
     Active Substance: PIPERACILLIN SODIUM\TAZOBACTAM SODIUM
     Indication: Product used for unknown indication
  11. RILUZOLE [Concomitant]
     Active Substance: RILUZOLE
     Indication: Amyotrophic lateral sclerosis
     Route: 048
     Dates: start: 20231129
  12. .ALPHA.-TOCOPHEROL ACETATE, D- [Concomitant]
     Active Substance: .ALPHA.-TOCOPHEROL ACETATE, D-
     Indication: Amyotrophic lateral sclerosis
     Route: 048
     Dates: start: 20240122
  13. PAROXETINE [Concomitant]
     Active Substance: PAROXETINE
     Indication: Amyotrophic lateral sclerosis
     Route: 048
  14. ATARAX [Concomitant]
     Active Substance: HYDROXYZINE HYDROCHLORIDE
     Indication: Amyotrophic lateral sclerosis
     Route: 048
  15. POLYETHYLENE GLYCOLS [Concomitant]
     Active Substance: POLYETHYLENE GLYCOLS
     Indication: Constipation
     Dosage: AS NEEDED 1 TO 2 SACHETS PER DAY
  16. CHOLECALCIFEROL [Concomitant]
     Active Substance: CHOLECALCIFEROL
     Indication: Product used for unknown indication
     Dosage: 1 AMPOULE A MONTH
  17. Bepanthen [Concomitant]
     Indication: Product used for unknown indication
  18. Sodium bicarbonate: [Concomitant]
     Indication: Product used for unknown indication

REACTIONS (6)
  - Amyotrophic lateral sclerosis [Fatal]
  - Respiratory failure [Not Recovered/Not Resolved]
  - Pulmonary embolism [Recovered/Resolved]
  - Radiation injury [Unknown]
  - CSF protein increased [Unknown]
  - Rhinovirus infection [Not Recovered/Not Resolved]

NARRATIVE: CASE EVENT DATE: 20240609
